FAERS Safety Report 5329974-1 (Version None)
Quarter: 2007Q2

REPORT INFORMATION
  Report Type: 
  Country: None (occurrence: None)
  Receive Date: 20070521
  Receipt Date: 20070517
  Transmission Date: 20071010
  Serious: Yes (Other)
  Sender: FDA-Public Use
  Company Number: A0648864A

PATIENT
  Age: 34 Year
  Sex: Female

DRUGS (2)
  1. LAMICTAL [Suspect]
     Indication: BIPOLAR DISORDER
     Route: 048
     Dates: start: 20070430, end: 20070507
  2. XANAX [Concomitant]
     Dosage: 1MG PER DAY
     Route: 048
     Dates: start: 20070430

REACTIONS (3)
  - JAUNDICE [None]
  - PRURITUS GENERALISED [None]
  - RASH GENERALISED [None]
